FAERS Safety Report 16486394 (Version 1)
Quarter: 2019Q2

REPORT INFORMATION
  Report Type: Spontaneous
  Country: US (occurrence: US)
  Receive Date: 20190517
  Receipt Date: 20190517
  Transmission Date: 20190711
  Serious: Yes (Hospitalization)
  Sender: FDA-Public Use
  Company Number: None

PATIENT
  Age: 13 Year
  Sex: Female

DRUGS (8)
  1. PULMOZYME [Suspect]
     Active Substance: DORNASE ALFA
     Indication: CYSTIC FIBROSIS
     Dosage: 1MG/1ML QD INHALATION
     Route: 055
     Dates: start: 20140623
  2. LANSOPRAZOLE. [Concomitant]
     Active Substance: LANSOPRAZOLE
  3. HUMALOG [Concomitant]
     Active Substance: INSULIN LISPRO
  4. PERTYZE [Concomitant]
  5. TOBI [Suspect]
     Active Substance: TOBRAMYCIN
     Indication: CYSTIC FIBROSIS
     Dosage: ?          OTHER DOSE:300MG/5ML;?
     Route: 055
     Dates: start: 20170928
  6. SIVEXTRO [Concomitant]
     Active Substance: TEDIZOLID PHOSPHATE
  7. AQAUDEKS [Concomitant]
  8. TERBINAFINE. [Concomitant]
     Active Substance: TERBINAFINE

REACTIONS (3)
  - Disease complication [None]
  - Cystic fibrosis [None]
  - Respiratory tract infection bacterial [None]

NARRATIVE: CASE EVENT DATE: 201902
